FAERS Safety Report 8811438 (Version 1)
Quarter: 2012Q4

REPORT INFORMATION
  Report Type: Spontaneous
  Country: US (occurrence: None)
  Receive Date: 20120925
  Receipt Date: 20120925
  Transmission Date: 20130627
  Serious: No
  Sender: FDA-Public Use
  Company Number: None

PATIENT
  Age: 33 Year
  Sex: Female

DRUGS (1)
  1. GABLOFEN [Suspect]
     Indication: SPASTICITY
     Dosage: 2000 mcg/ml concentration, 474.6 mcgr/d, intrathecal
     Route: 037

REACTIONS (3)
  - Drug effect decreased [None]
  - Muscle spasticity [None]
  - Condition aggravated [None]
